FAERS Safety Report 23762137 (Version 1)
Quarter: 2024Q2

REPORT INFORMATION
  Report Type: Spontaneous
  Country: CN (occurrence: CN)
  Receive Date: 20240419
  Receipt Date: 20240419
  Transmission Date: 20240716
  Serious: Yes (Other)
  Sender: FDA-Public Use
  Company Number: CN-MLMSERVICE-20240408-PI011368-00202-2

PATIENT
  Age: 38 Year
  Sex: Female

DRUGS (6)
  1. LINEZOLID [Suspect]
     Active Substance: LINEZOLID
     Indication: Mycobacterium abscessus infection
     Dosage: 0.6 G, 1X/DAY
     Dates: start: 20221111, end: 202301
  2. LINEZOLID [Suspect]
     Active Substance: LINEZOLID
     Dosage: 0.6 G, 1X/DAY
     Dates: start: 20221121, end: 202301
  3. LINEZOLID [Suspect]
     Active Substance: LINEZOLID
     Dosage: 0.3 G, 1X/DAY
     Dates: start: 20221121, end: 202301
  4. MOXIFLOXACIN [Concomitant]
     Active Substance: MOXIFLOXACIN
     Indication: Mycobacterium abscessus infection
     Dosage: 0.4 G, 1X/DAY
     Dates: start: 20221111
  5. MOXIFLOXACIN [Concomitant]
     Active Substance: MOXIFLOXACIN
     Dosage: 0.4 G, 1X/DAY
     Dates: start: 20221121
  6. CLARITHROMYCIN [Concomitant]
     Active Substance: CLARITHROMYCIN
     Indication: Mycobacterium abscessus infection
     Dosage: 0.5 G, 2X/DAY (FREQ:12 H)
     Dates: start: 20221122

REACTIONS (5)
  - Hepatotoxicity [Recovered/Resolved]
  - Neurotoxicity [Unknown]
  - Hepatic function abnormal [Recovered/Resolved]
  - Hypoaesthesia [Unknown]
  - Off label use [Unknown]

NARRATIVE: CASE EVENT DATE: 20221111
